FAERS Safety Report 9675200 (Version 1)
Quarter: 2013Q4

REPORT INFORMATION
  Report Type: Spontaneous
  Country: FR (occurrence: FR)
  Receive Date: 20131107
  Receipt Date: 20131107
  Transmission Date: 20140711
  Serious: Yes (Other)
  Sender: FDA-Public Use
  Company Number: FR-009507513-1310FRA014285

PATIENT
  Age: 52 Year
  Sex: Male

DRUGS (5)
  1. INEGY [Suspect]
     Indication: PRODUCT USED FOR UNKNOWN INDICATION
     Dosage: UNK
     Route: 048
     Dates: start: 201105, end: 20130701
  2. COTAREG [Concomitant]
     Dosage: UNK
     Dates: start: 201210
  3. NEBIVOLOL [Concomitant]
     Dosage: UNK
     Dates: start: 201210
  4. DUOPLAVIN [Concomitant]
     Dosage: UNK
     Dates: start: 201210
  5. ARTOTEC [Concomitant]

REACTIONS (1)
  - Tendon rupture [Unknown]
